FAERS Safety Report 5278674-5 (Version None)
Quarter: 2007Q1

REPORT INFORMATION
  Report Type: 
  Country: None (occurrence: None)
  Receive Date: 20061213
  Receipt Date: 20060118
  Transmission Date: 20070707
  Serious: Yes (Hospitalization)
  Sender: FDA-Public Use
  Company Number: 2006UW00999

PATIENT
  Sex: Male

DRUGS (2)
  1. SEROQUEL [Suspect]
  2. OTHER MEDICATIONS [Concomitant]

REACTIONS (2)
  - DYSKINESIA [None]
  - EXTRAPYRAMIDAL DISORDER [None]
